FAERS Safety Report 6342255-2 (Version None)
Quarter: 2009Q3

REPORT INFORMATION
  Report Type: 
  Country: None (occurrence: None)
  Receive Date: 20090907
  Receipt Date: 20070821
  Transmission Date: 20100115
  Serious: Yes (Hospitalization, Other)
  Sender: FDA-Public Use
  Company Number: US-ASTRAZENECA-2006UW11911

PATIENT
  Age: 18747 Day
  Sex: Male
  Weight: 95.3 kg

DRUGS (19)
  1. SEROQUEL [Suspect]
     Indication: DEPRESSION
     Dosage: 50 MG-100 MG AT NIGHT
     Route: 048
     Dates: start: 20030218
  2. SEROQUEL [Suspect]
     Indication: EMOTIONAL DISORDER
     Dosage: 50 MG-100 MG AT NIGHT
     Route: 048
     Dates: start: 20030218
  3. SEROQUEL [Suspect]
     Route: 048
     Dates: start: 20040101
  4. SEROQUEL [Suspect]
     Route: 048
     Dates: start: 20040101
  5. KLONOPIN [Concomitant]
     Dates: start: 20030218
  6. CELEBREX [Concomitant]
     Indication: OSTEOARTHRITIS
     Dates: start: 20011102
  7. DEPAKOTE ER [Concomitant]
     Dosage: 1000 MG-1500 MG DAILY
     Dates: start: 20031216
  8. FLONASE [Concomitant]
     Indication: RHINITIS ALLERGIC
     Dosage: AS REQUIRED
     Route: 045
     Dates: start: 20011102
  9. FLONASE [Concomitant]
     Indication: NASAL CONGESTION
     Dosage: AS REQUIRED
     Route: 045
     Dates: start: 20011102
  10. EFFEXOR XR [Concomitant]
     Dosage: 75 MG-150 MG DAILY
     Dates: start: 20021029
  11. WELLBUTRIN SR [Concomitant]
     Dates: start: 20021202
  12. HYDROCHLOROTHIAZIDE [Concomitant]
     Indication: HYPERTENSION
     Dates: start: 20030120
  13. TOPAMAX [Concomitant]
     Indication: TREMOR
     Dates: start: 20030101
  14. TOPAMAX [Concomitant]
     Indication: SLEEP DISORDER
     Dates: start: 20030101
  15. LEXAPRO [Concomitant]
     Dates: start: 20040108
  16. AMBIEN [Concomitant]
     Dosage: 10 MG-20 MG AT NIGHT
     Dates: start: 20040108
  17. OMACOR [Concomitant]
     Indication: DYSLIPIDAEMIA
     Dates: start: 20070709
  18. TOPROL-XL [Concomitant]
     Indication: HYPERTENSION
     Dates: start: 20011210
  19. IMITREX [Concomitant]
     Indication: MIGRAINE
     Dates: start: 20010228

REACTIONS (5)
  - DIABETES MELLITUS [None]
  - DIABETIC NEUROPATHY [None]
  - HYPERLIPIDAEMIA [None]
  - PANCREATITIS [None]
  - TYPE 2 DIABETES MELLITUS [None]
